FAERS Safety Report 6582678-X (Version None)
Quarter: 2010Q1

REPORT INFORMATION
  Report Type: 
  Country: None (occurrence: None)
  Receive Date: 20100216
  Receipt Date: 20100205
  Transmission Date: 20100710
  Serious: Yes (Other)
  Sender: FDA-Public Use
  Company Number: CH-PFIZER INC-2009309284

PATIENT
  Age: 72 Year
  Sex: Male

DRUGS (6)
  1. SORTIS [Suspect]
     Dosage: 40 MG, 1X/DAY
     Route: 048
     Dates: start: 20091121, end: 20091204
  2. ASPIRIN [Suspect]
     Dosage: 100 MG, 1X/DAY
     Route: 048
     Dates: start: 20091121, end: 20091204
  3. METFORMIN HYDROCHLORIDE [Concomitant]
     Dosage: 500 MG, 2X/DAY
     Route: 048
  4. NOCTAMID [Concomitant]
     Dosage: 2 MG, 1X/DAY
     Route: 048
  5. ZOLPIDEM [Concomitant]
     Dosage: 10 MG, 1X/DAY
     Route: 048
  6. COAPROVEL [Concomitant]
     Dosage: 300 MG, 1X/DAY
     Route: 048

REACTIONS (2)
  - DRY SKIN [None]
  - SKIN EXFOLIATION [None]
